FAERS Safety Report 25123702 (Version 1)
Quarter: 2025Q1

REPORT INFORMATION
  Report Type: Spontaneous
  Country: DE (occurrence: DE)
  Receive Date: 20250326
  Receipt Date: 20250326
  Transmission Date: 20250409
  Serious: Yes (Congenital Anomaly, Other)
  Sender: AUROBINDO
  Company Number: DE-EMB-M202309854-1

PATIENT
  Sex: Male
  Weight: 3.12 kg

DRUGS (2)
  1. SERTRALINE [Suspect]
     Active Substance: SERTRALINE HYDROCHLORIDE
     Indication: Obsessive thoughts
     Dosage: 50 MILLIGRAM, ONCE A DAY
     Route: 064
     Dates: start: 202308
  2. UTROGESTAN [Concomitant]
     Active Substance: PROGESTERONE
     Indication: Haemorrhage in pregnancy
     Route: 064

REACTIONS (2)
  - Hypospadias [Not Recovered/Not Resolved]
  - Foetal exposure during pregnancy [Unknown]
